FAERS Safety Report 6418012-5 (Version None)
Quarter: 2009Q4

REPORT INFORMATION
  Report Type: 
  Country: None (occurrence: None)
  Receive Date: 20091028
  Receipt Date: 20091026
  Transmission Date: 20100525
  Serious: Yes (Other)
  Sender: FDA-Public Use
  Company Number: JP-PFIZER INC-2009281070

PATIENT
  Age: 84 Year

DRUGS (1)
  1. METHYLPREDNISOLONE AND METHYLPREDNISOLONE ACETATE AND METHYLPREDNISOLO [Suspect]
     Indication: GLOMERULONEPHRITIS RAPIDLY PROGRESSIVE
     Dosage: UNK
     Route: 042
     Dates: start: 20060701

REACTIONS (6)
  - BRAIN ABSCESS [None]
  - DIABETES MELLITUS [None]
  - MEDIASTINAL ABSCESS [None]
  - NOCARDIOSIS [None]
  - SCLERITIS [None]
  - SUBCUTANEOUS ABSCESS [None]
